FAERS Safety Report 4532209-0 (Version None)
Quarter: 2004Q4

REPORT INFORMATION
  Report Type: 
  Country: None (occurrence: None)
  Receive Date: 20041217
  Receipt Date: 20041207
  Transmission Date: 20050328
  Serious: Yes (Other)
  Sender: FDA-Public Use
  Company Number: 2004107045

PATIENT
  Age: 75 Year
  Sex: Male

DRUGS (1)
  1. VFEND [Suspect]
     Indication: BRONCHOPULMONARY ASPERGILLOSIS
     Dates: start: 20040101

REACTIONS (1)
  - CORONARY ARTERY STENOSIS [None]
